FAERS Safety Report 11753592 (Version 1)
Quarter: 2015Q4

REPORT INFORMATION
  Report Type: Spontaneous
  Country: US (occurrence: US)
  Receive Date: 20151119
  Receipt Date: 20151119
  Transmission Date: 20160304
  Serious: Yes (Death)
  Sender: FDA-Public Use
  Company Number: US-WEST-WARD PHARMACEUTICALS CORP.-US-H14001-15-01984

PATIENT
  Age: 53 Year
  Sex: Male

DRUGS (1)
  1. AMIODARONE [Suspect]
     Active Substance: AMIODARONE
     Indication: TACHYCARDIA
     Dosage: 16CC/HR
     Route: 041

REACTIONS (5)
  - Coagulopathy [None]
  - Hepatomegaly [None]
  - Multi-organ disorder [None]
  - Hepatic failure [Fatal]
  - Multi-organ failure [None]
